FAERS Safety Report 5164243-4 (Version None)
Quarter: 2006Q4

REPORT INFORMATION
  Report Type: 
  Country: None (occurrence: None)
  Receive Date: 20060918
  Receipt Date: 20050926
  Transmission Date: 20070319
  Serious: Yes (Other)
  Sender: FDA-Public Use
  Company Number: US-JNJFOC-20050906278

PATIENT
  Age: 18 Year
  Sex: Female
  Weight: 106.5953 kg

DRUGS (3)
  1. TOPAMAX [Suspect]
     Indication: PARTIAL SEIZURES
     Dosage: SEE IMAGE
     Dates: start: 20040526, end: 20050923
  2. TOPAMAX [Suspect]
     Indication: PARTIAL SEIZURES
     Dosage: SEE IMAGE
     Dates: start: 20050923
  3. TEGRETOL [Concomitant]

REACTIONS (5)
  - ANOREXIA [None]
  - CONVULSION [None]
  - DIARRHOEA [None]
  - HEADACHE [None]
  - VIRAL INFECTION [None]
